FAERS Safety Report 16581499 (Version 1)
Quarter: 2019Q3

REPORT INFORMATION
  Report Type: Spontaneous
  Country: US (occurrence: US)
  Receive Date: 20190716
  Receipt Date: 20190716
  Transmission Date: 20191004
  Serious: No
  Sender: FDA-Public Use
  Company Number: US-CHILTERN-US-2019-000510

PATIENT
  Sex: Male

DRUGS (22)
  1. STOOL SOFTENER (DOCUSATE) [Concomitant]
     Active Substance: DOCUSATE
     Dosage: UNK UNK, PRN IF NEEDED
  2. COMBIGAN [Concomitant]
     Active Substance: BRIMONIDINE TARTRATE\TIMOLOL MALEATE
     Dosage: OPTHALMIC SOLUTION 5ML 2 GTT, BID
     Route: 047
  3. NASAL SPRAY II [Concomitant]
     Dosage: UNK UNK, PRN
  4. VITAMIN D3 [Concomitant]
     Active Substance: CHOLECALCIFEROL
     Dosage: 1000 MG, QD
  5. CRESTOR [Concomitant]
     Active Substance: ROSUVASTATIN CALCIUM
     Dosage: 40 MG, QD
  6. PANTOPRAZOLE [Concomitant]
     Active Substance: PANTOPRAZOLE
     Dosage: 40 MG, BID
  7. XANAX [Concomitant]
     Active Substance: ALPRAZOLAM
     Dosage: 1 MG, BID
  8. VITAMIN B12 [Concomitant]
     Active Substance: CYANOCOBALAMIN
     Dosage: 1500 MG, QD
  9. LORATADINE. [Concomitant]
     Active Substance: LORATADINE
     Dosage: 10 MG, QD AT BEDTIME
  10. SYMBICORT [Concomitant]
     Active Substance: BUDESONIDE\FORMOTEROL FUMARATE DIHYDRATE
     Dosage: 2 PUFF BID 160/4.5
     Route: 048
  11. MONTELUKAST [Concomitant]
     Active Substance: MONTELUKAST SODIUM
     Dosage: 10 MG, AT BED TIME
  12. LATANOPROST. [Concomitant]
     Active Substance: LATANOPROST
     Dosage: 1 GTT, EACH EYE NIGHTLY
  13. RHOPRESSA [Suspect]
     Active Substance: NETARSUDIL MESYLATE
     Indication: GLAUCOMA
     Dosage: 1 GTT RIGHT EYE, UNK
     Route: 047
  14. PRADAXA [Concomitant]
     Active Substance: DABIGATRAN ETEXILATE MESYLATE
     Dosage: 150 MG, BID
  15. MELATONIN [Concomitant]
     Active Substance: MELATONIN
     Dosage: 10 MG, AT BED TIME
  16. ARTIFICIAL TEARS                   /00222401/ [Concomitant]
     Active Substance: PROPYLENE GLYCOL
     Dosage: 2-3 TIMES PRN BOTH EYES
  17. PROAIR HFA [Concomitant]
     Active Substance: ALBUTEROL SULFATE
     Dosage: 2 PUFF, PRN
  18. FLORASTOR                          /00079701/ [Concomitant]
     Dosage: 1 A DAY
  19. ASPIRIN                            /00002701/ [Concomitant]
     Active Substance: ASPIRIN
     Dosage: 81 MG, QD
  20. OXYGEN. [Concomitant]
     Active Substance: OXYGEN
     Dosage: 2 L, AT BEDTIME
  21. CALCIUM/VITAMIN D3 [Concomitant]
     Dosage: 1000 MG, QD
  22. MAGNESIUM OXIDE. [Concomitant]
     Active Substance: MAGNESIUM OXIDE
     Dosage: 500 MG, BID

REACTIONS (1)
  - Diarrhoea [Not Recovered/Not Resolved]
